FAERS Safety Report 7188682-5 (Version None)
Quarter: 2010Q4

REPORT INFORMATION
  Report Type: 
  Country: None (occurrence: None)
  Receive Date: 20101222
  Receipt Date: 20100726
  Transmission Date: 20110411
  Serious: Yes (Hospitalization, Other)
  Sender: FDA-Public Use
  Company Number: US-AMGEN-KDL422389

PATIENT

DRUGS (1)
  1. ENBREL [Suspect]
     Indication: PSORIATIC ARTHROPATHY
     Dosage: 25 MG, QWK
     Route: 058
     Dates: start: 20040210, end: 20090405

REACTIONS (3)
  - CELLULITIS [None]
  - HERPES ZOSTER OPHTHALMIC [None]
  - SINUSITIS [None]
